FAERS Safety Report 11019497 (Version 2)
Quarter: 2015Q2

REPORT INFORMATION
  Report Type: Spontaneous
  Country: US (occurrence: US)
  Receive Date: 20150412
  Receipt Date: 20150525
  Transmission Date: 20150821
  Serious: No
  Sender: FDA-Public Use
  Company Number: US-JNJFOC-20140903532

PATIENT
  Age: 5 Decade
  Sex: Female

DRUGS (1)
  1. LEVAQUIN [Suspect]
     Active Substance: LEVOFLOXACIN
     Indication: SINUS DISORDER
     Route: 048
     Dates: start: 200812, end: 200812

REACTIONS (4)
  - Condition aggravated [Recovered/Resolved]
  - Drug hypersensitivity [Not Recovered/Not Resolved]
  - Surgery [Unknown]
  - Ear congestion [Recovered/Resolved]

NARRATIVE: CASE EVENT DATE: 200812
